FAERS Safety Report 6473368-2 (Version None)
Quarter: 2009Q4

REPORT INFORMATION
  Report Type: 
  Country: None (occurrence: None)
  Receive Date: 20091204
  Receipt Date: 20091125
  Transmission Date: 20100525
  Serious: Yes (Other)
  Sender: FDA-Public Use
  Company Number: JP-B.I. PHARMACEUTICALS,INC./RIDGEFIELD-2009-DE-07320GD

PATIENT
  Age: 67 Year
  Sex: Male

DRUGS (1)
  1. PRAMIPEXOLE DIHYDROCHLORIDE [Suspect]
     Indication: PARKINSON'S DISEASE
     Route: 048

REACTIONS (1)
  - POSTURE ABNORMAL [None]
